FAERS Safety Report 5937777-X (Version None)
Quarter: 2008Q4

REPORT INFORMATION
  Report Type: 
  Country: None (occurrence: None)
  Receive Date: 20081031
  Receipt Date: 20081022
  Transmission Date: 20090506
  Serious: Yes (Hospitalization)
  Sender: FDA-Public Use
  Company Number: JP-ASTRAZENECA-2008AP07393

PATIENT
  Age: 71 Year
  Sex: Male
  Weight: 46 kg

DRUGS (12)
  1. CASODEX [Suspect]
     Indication: PROSTATE CANCER
     Route: 048
     Dates: start: 20080830, end: 20080904
  2. ENDOXAN [Concomitant]
     Route: 048
  3. PREDONINE [Concomitant]
     Route: 048
  4. FUROSEMIDE [Concomitant]
     Route: 048
  5. THEO-DUR [Concomitant]
     Route: 048
  6. MEILAX [Concomitant]
     Route: 048
  7. ACINON [Concomitant]
     Route: 048
  8. CLEANAL [Concomitant]
     Route: 048
  9. ALLOPURINOL [Concomitant]
     Route: 048
  10. CYANOCOBALAMIN [Concomitant]
     Route: 048
  11. HOKUNALIN:TAPE [Concomitant]
     Route: 062
  12. SPIRIVA [Concomitant]
     Route: 055

REACTIONS (3)
  - DYSPNOEA [None]
  - INSOMNIA [None]
  - MALAISE [None]
